FAERS Safety Report 19099514 (Version 1)
Quarter: 2021Q2

REPORT INFORMATION
  Report Type: Spontaneous
  Country: AR (occurrence: AR)
  Receive Date: 20210406
  Receipt Date: 20210406
  Transmission Date: 20210717
  Serious: Yes (Other)
  Sender: FDA-Public Use
  Company Number: AR-VALIDUS PHARMACEUTICALS LLC-AR-2021VAL000613

PATIENT
  Age: 80 Year
  Sex: Female

DRUGS (1)
  1. TRENTAL [Suspect]
     Active Substance: PENTOXIFYLLINE
     Indication: POLYNEUROPATHY
     Dosage: 400 MG, QD
     Route: 048
     Dates: start: 201801

REACTIONS (1)
  - Haemorrhage [Recovered/Resolved]

NARRATIVE: CASE EVENT DATE: 201801
